APPROVED DRUG PRODUCT: DOXERCALCIFEROL
Active Ingredient: DOXERCALCIFEROL
Strength: 4MCG/2ML (2MCG/ML)
Dosage Form/Route: INJECTABLE;INJECTION
Application: A203875 | Product #002
Applicant: SUN PHARMACEUTICAL INDUSTRIES LTD
Approved: Nov 14, 2019 | RLD: No | RS: No | Type: DISCN